FAERS Safety Report 9302136 (Version 1)
Quarter: 2013Q2

REPORT INFORMATION
  Report Type: Spontaneous
  Country: RU (occurrence: RU)
  Receive Date: 20130522
  Receipt Date: 20130522
  Transmission Date: 20140414
  Serious: Yes (Hospitalization, Other)
  Sender: FDA-Public Use
  Company Number: RU-B.I. PHARMACEUTICALS,INC./RIDGEFIELD-2013-BI-12121GD

PATIENT
  Age: 75 Year
  Sex: 0

DRUGS (7)
  1. PRADAXA [Suspect]
     Indication: ANTICOAGULANT THERAPY
     Dosage: 220 MG
     Route: 048
     Dates: start: 201210, end: 20121027
  2. SPIRONOLACTONE [Suspect]
     Indication: CARDIAC FAILURE
     Dosage: 50 MG
     Dates: start: 201210, end: 20121027
  3. ENALAPRIL [Suspect]
     Indication: CARDIAC FAILURE
     Dosage: 20 MG
     Dates: start: 201210, end: 20121027
  4. AMLODIPINE [Concomitant]
     Indication: CARDIAC FAILURE
     Dosage: 2.5 MG
     Dates: start: 201210
  5. FUROSEMIDE [Concomitant]
     Indication: CARDIAC FAILURE
     Dosage: 80 MG
     Dates: start: 201210
  6. ATORVASTATIN [Concomitant]
     Indication: CARDIAC FAILURE
     Dosage: 20 MG
     Dates: start: 201210
  7. DIABETON [Concomitant]
     Dosage: 20 MG
     Dates: start: 201210

REACTIONS (6)
  - Renal impairment [Recovered/Resolved]
  - Condition aggravated [Recovered/Resolved]
  - Haemorrhage [Recovered/Resolved]
  - Asthenia [Recovered/Resolved]
  - Dyspnoea [Recovered/Resolved]
  - Dizziness [Recovered/Resolved]
